FAERS Safety Report 4529615-7 (Version None)
Quarter: 2005Q1

REPORT INFORMATION
  Report Type: 
  Country: None (occurrence: None)
  Receive Date: 20041202
  Receipt Date: 20040825
  Transmission Date: 20050727
  Serious: No
  Sender: FDA-Public Use
  Company Number: 200419700BWH

PATIENT
  Age: 71 Year
  Sex: Male

DRUGS (6)
  1. LEVITRA [Suspect]
     Indication: ERECTILE DYSFUNCTION
     Dosage: 20 MG, TOTAL DAILY, ORAL
     Route: 048
     Dates: start: 20030101
  2. PAXIL [Suspect]
     Dosage: 20 MG, BID, ORAL
     Route: 048
  3. EFFEXOR [Suspect]
     Dosage: 37.5 MG, BID, ORAL
     Route: 048
  4. ANTIDEPRESSANT (DOES NOT KNOW NAME) (UNCODEABLE ^UNCLASSIFIABLE^) [Suspect]
  5. ENALAPRIL [Concomitant]
  6. LORAZEPAM [Concomitant]

REACTIONS (1)
  - ERECTILE DYSFUNCTION [None]
